FAERS Safety Report 8268832-X (Version None)
Quarter: 2012Q2

REPORT INFORMATION
  Report Type: 
  Country: None (occurrence: None)
  Receive Date: 20120409
  Receipt Date: 20120409
  Transmission Date: 20120825
  Serious: Yes (Other)
  Sender: FDA-Public Use
  Company Number: None

PATIENT
  Age: 40 Year
  Sex: Female
  Weight: 75.749 kg

DRUGS (1)
  1. ESCITALOPRAM [Suspect]
     Indication: DEPRESSION
     Dosage: 2 TABLETS
     Route: 048
     Dates: start: 20120305, end: 20120406

REACTIONS (9)
  - CRYING [None]
  - DISTURBANCE IN ATTENTION [None]
  - PRODUCT SUBSTITUTION ISSUE [None]
  - ANXIETY [None]
  - IRRITABILITY [None]
  - MOOD SWINGS [None]
  - ANGER [None]
  - DRUG INEFFECTIVE [None]
  - EMOTIONAL DISORDER [None]
